FAERS Safety Report 25265348 (Version 1)
Quarter: 2025Q2

REPORT INFORMATION
  Report Type: Spontaneous
  Country: IN (occurrence: IN)
  Receive Date: 20250502
  Receipt Date: 20250502
  Transmission Date: 20250717
  Serious: Yes (Life-Threatening, Hospitalization, Other)
  Sender: FRESENIUS KABI
  Company Number: IN-FreseniusKabi-FK202506390

PATIENT
  Age: 53 Year
  Sex: Female

DRUGS (3)
  1. GEMCITABINE [Suspect]
     Active Substance: GEMCITABINE
     Indication: Product used for unknown indication
     Dates: start: 20250424
  2. CARBOPLATIN [Concomitant]
     Active Substance: CARBOPLATIN
     Indication: Product used for unknown indication
     Dates: start: 20250424
  3. TRASTUZUMAB [Concomitant]
     Active Substance: TRASTUZUMAB
     Indication: Product used for unknown indication
     Dates: start: 20250424

REACTIONS (3)
  - Acute lung injury [Recovering/Resolving]
  - Tachycardia [Recovering/Resolving]
  - Crepitations [Recovering/Resolving]

NARRATIVE: CASE EVENT DATE: 20250424
